FAERS Safety Report 14399901 (Version 6)
Quarter: 2019Q1

REPORT INFORMATION
  Report Type: Report from Study
  Country: US (occurrence: US)
  Receive Date: 20180117
  Receipt Date: 20190116
  Transmission Date: 20190417
  Serious: Yes (Hospitalization)
  Sender: FDA-Public Use
  Company Number: US-ROCHE-2054196

PATIENT
  Age: 63 Year
  Sex: Male
  Weight: 83.74 kg

DRUGS (48)
  1. MAXIPIME [Concomitant]
     Active Substance: CEFEPIME HYDROCHLORIDE
     Dosage: 2G/50ML
     Route: 042
  2. FLOMAX [Concomitant]
     Active Substance: TAMSULOSIN HYDROCHLORIDE
     Route: 048
  3. VITAMIN D2 [Concomitant]
     Active Substance: ERGOCALCIFEROL
  4. ERTAPENEM SODIUM [Concomitant]
     Active Substance: ERTAPENEM SODIUM
     Route: 042
  5. RITUXIMAB. [Suspect]
     Active Substance: RITUXIMAB
     Indication: DIFFUSE LARGE B-CELL LYMPHOMA
     Dosage: ON DAY 1 AND DAY 4 EACH CYCLE OF EPOCH-R
     Route: 042
     Dates: start: 20171227
  6. ONDANSETRON [Concomitant]
     Active Substance: ONDANSETRON
     Dosage: 1-2 TABLETS (4-8 MG TOTAL) BY MOUTH
     Route: 065
  7. LOVENOX [Concomitant]
     Active Substance: ENOXAPARIN SODIUM
     Dosage: 80 MG/0.8 ML SYRIGE?0.7 ML (70 MG TOTAL) UNDER THE SKIN
     Route: 058
  8. ALBUTEROL. [Concomitant]
     Active Substance: ALBUTEROL
     Dosage: INHALE 2 PUFFS INTO THE LUNGS EVERY 6 HOURS AS NEEDED
     Route: 065
  9. LOPERAMIDE [Concomitant]
     Active Substance: LOPERAMIDE
     Indication: DIARRHOEA
     Route: 065
  10. TOPROL XL [Concomitant]
     Active Substance: METOPROLOL SUCCINATE
     Indication: AKATHISIA
     Dosage: 24 HOUR TABLET
     Route: 065
  11. MIRALAX [Concomitant]
     Active Substance: POLYETHYLENE GLYCOL 3350
     Indication: CONSTIPATION
     Route: 065
  12. SENOKOT [Concomitant]
     Active Substance: SENNOSIDES
     Dosage: 2 TABLETS BY MOUTH NIGHTLY
     Route: 065
  13. COMPAZINE [Concomitant]
     Active Substance: PROCHLORPERAZINE MALEATE
     Indication: VOMITING
  14. ASPIRIN. [Concomitant]
     Active Substance: ASPIRIN
     Dosage: CHEWABLE TABLET
     Route: 065
  15. ATIVAN [Concomitant]
     Active Substance: LORAZEPAM
     Indication: ANXIETY
     Dosage: 1-2 TABLETS(0.5-1 MG TOTAL) AS NEEDED
     Route: 065
  16. PRILOSEC [Concomitant]
     Active Substance: OMEPRAZOLE MAGNESIUM
  17. VINCRISTINE SULFATE. [Suspect]
     Active Substance: VINCRISTINE SULFATE
     Indication: DIFFUSE LARGE B-CELL LYMPHOMA
     Dosage: MOST RECENT DOSE 12/MAR/2018
     Route: 042
     Dates: start: 20171227
  18. BENADRYL [Concomitant]
     Active Substance: DIPHENHYDRAMINE HYDROCHLORIDE
     Route: 065
  19. MEPRON (ATOVAQUONE) [Concomitant]
     Route: 065
  20. MEPRON (ATOVAQUONE) [Concomitant]
     Dosage: 750 MG/5 ML, 10 ML(1500 MG TOTAL) BY MOUTH DAILY WITH BREAKFAST
     Route: 065
  21. NEULASTA [Concomitant]
     Active Substance: PEGFILGRASTIM
     Dosage: 6 MG/0.6 ML AS NEEDED
     Route: 058
  22. SODIUM CHLORIDE. [Concomitant]
     Active Substance: SODIUM CHLORIDE
     Dosage: SYRIGE FLUSH?INJECT 1-20 ML INTO VEIN
     Route: 065
  23. VENETOCLAX. [Suspect]
     Active Substance: VENETOCLAX
     Indication: DIFFUSE LARGE B-CELL LYMPHOMA
     Dosage: ON DAYS 3-12 IN CYCLE 1, AND DAYS 1-10 WITH ALL SUBSEQUENT CYCLES EXCEPT DOSE LEVEL -1?CYCLE 1 DAY 1
     Route: 048
     Dates: start: 20171227
  24. ETOPOSIDE. [Suspect]
     Active Substance: ETOPOSIDE
     Indication: DIFFUSE LARGE B-CELL LYMPHOMA
     Dosage: MOST RECENT DOSE 12/MAR/2018
     Route: 042
     Dates: start: 20171227
  25. OXYCODONE [Concomitant]
     Active Substance: OXYCODONE
     Route: 048
  26. POLYETHYLENE GLYCOL [Concomitant]
     Active Substance: POLYETHYLENE GLYCOLS
     Route: 048
  27. MELATONIN [Concomitant]
     Active Substance: MELATONIN
     Route: 065
  28. PREDNISONE. [Suspect]
     Active Substance: PREDNISONE
     Indication: DIFFUSE LARGE B-CELL LYMPHOMA
     Dosage: MOST RECENT DOSE 12/MAR/2018
     Route: 048
     Dates: start: 20171227
  29. COZAAR [Concomitant]
     Active Substance: LOSARTAN POTASSIUM
     Route: 048
  30. ZOFRAN [Concomitant]
     Active Substance: ONDANSETRON HYDROCHLORIDE
     Dosage: 4-8MG
     Route: 048
  31. METFORMIN [Concomitant]
     Active Substance: METFORMIN HYDROCHLORIDE
     Dosage: WITH MEALS
     Route: 065
  32. DIOVAN [Concomitant]
     Active Substance: VALSARTAN
     Route: 065
  33. CYCLOPHOSPHAMIDE. [Suspect]
     Active Substance: CYCLOPHOSPHAMIDE
     Indication: DIFFUSE LARGE B-CELL LYMPHOMA
     Dosage: MOST RECENT DOSE 12/MAR/2018
     Route: 042
     Dates: start: 20171227
  34. ATIVAN [Concomitant]
     Active Substance: LORAZEPAM
     Route: 048
  35. LOPRESSOR [Concomitant]
     Active Substance: METOPROLOL TARTRATE
     Route: 048
  36. HEPARIN FLUSH [Concomitant]
     Active Substance: HEPARIN SODIUM
     Dosage: 10 UNIT/ML KIT?INJECT 2-5 ML INTO VEIN
     Route: 065
  37. DOXORUBICIN HYDROCHLORIDE. [Suspect]
     Active Substance: DOXORUBICIN HYDROCHLORIDE
     Indication: DIFFUSE LARGE B-CELL LYMPHOMA
     Dosage: MOST RECENT DOSE 12/MAR/2018
     Route: 042
     Dates: start: 20171227
  38. ADRIAMYCIN [Concomitant]
     Active Substance: DOXORUBICIN HYDROCHLORIDE
     Route: 065
  39. TYLENOL [Concomitant]
     Active Substance: ACETAMINOPHEN
     Route: 065
  40. ZOVIRAX [Concomitant]
     Active Substance: ACYCLOVIR
     Dosage: BY MOUTH
     Route: 048
     Dates: start: 20180227
  41. PRILOSEC [Concomitant]
     Active Substance: OMEPRAZOLE MAGNESIUM
     Route: 048
  42. COMPAZINE [Concomitant]
     Active Substance: PROCHLORPERAZINE MALEATE
     Indication: NAUSEA
     Route: 048
  43. SODIUM CHLORIDE. [Concomitant]
     Active Substance: SODIUM CHLORIDE
     Route: 042
  44. LOVENOX [Concomitant]
     Active Substance: ENOXAPARIN SODIUM
     Route: 058
  45. LOMOTIL (ATROPINE/DIPHENOXYLATE) [Concomitant]
     Indication: DIARRHOEA
     Dosage: 2.50.025 MG PER TABLET?1 TABLET BY MOUTH AS NEEDED
     Route: 065
  46. FLOMAX [Concomitant]
     Active Substance: TAMSULOSIN HYDROCHLORIDE
     Dosage: BY MOUTH NIGHTLY
     Route: 065
  47. COLACE [Concomitant]
     Active Substance: DOCUSATE SODIUM
     Indication: CONSTIPATION
     Route: 065
  48. IBUPROFEN. [Concomitant]
     Active Substance: IBUPROFEN
     Indication: FLATULENCE
     Route: 065

REACTIONS (6)
  - Bacteraemia [Unknown]
  - Febrile neutropenia [Unknown]
  - Prostatic abscess [Unknown]
  - Escherichia urinary tract infection [Unknown]
  - Febrile neutropenia [Unknown]
  - Urethral fistula [Unknown]

NARRATIVE: CASE EVENT DATE: 20180107
